FAERS Safety Report 4814291-6 (Version None)
Quarter: 2005Q4

REPORT INFORMATION
  Report Type: 
  Country: None (occurrence: None)
  Receive Date: 20051028
  Receipt Date: 20050729
  Transmission Date: 20060501
  Serious: No
  Sender: FDA-Public Use
  Company Number: US-GLAXOSMITHKLINE-A0568294A

PATIENT
  Sex: Female

DRUGS (23)
  1. ADVAIR DISKUS 100/50 [Suspect]
     Indication: ASTHMA
     Dosage: 1PUFF TWICE PER DAY
     Route: 055
     Dates: start: 20050630, end: 20050101
  2. VENTOLIN [Suspect]
     Indication: ASTHMA
     Route: 055
  3. PREMARIN [Suspect]
     Indication: HORMONE REPLACEMENT THERAPY
     Dosage: .3MG ALTERNATE DAYS
     Route: 048
  4. SINGULAIR [Suspect]
     Dosage: 10MG PER DAY
     Route: 048
     Dates: start: 20050601, end: 20050101
  5. PREMARIN [Concomitant]
  6. VOLTAREN [Concomitant]
  7. PEPCID [Concomitant]
  8. LEVOXYL [Concomitant]
  9. DYAZIDE [Concomitant]
  10. VAGIFEM [Concomitant]
  11. PRAVACHOL [Concomitant]
  12. ZETIA [Concomitant]
  13. ATENOLOL [Concomitant]
  14. FOLATE [Concomitant]
  15. K-DUR 10 [Concomitant]
  16. ACTONEL [Concomitant]
  17. VITAMINS [Concomitant]
  18. VITAMIN D [Concomitant]
  19. ASPIRIN [Concomitant]
  20. CRANBERRY CAPSULES [Concomitant]
  21. CENTRUM SILVER [Concomitant]
  22. FISH OIL [Concomitant]
  23. COLACE [Concomitant]

REACTIONS (9)
  - CONSTIPATION [None]
  - DRUG INEFFECTIVE [None]
  - HOT FLUSH [None]
  - OEDEMA [None]
  - OEDEMA PERIPHERAL [None]
  - OSTEOPENIA [None]
  - RESTLESSNESS [None]
  - THERAPEUTIC RESPONSE DELAYED [None]
  - WEIGHT INCREASED [None]
